FAERS Safety Report 7425482-2 (Version None)
Quarter: 2011Q2

REPORT INFORMATION
  Report Type: 
  Country: None (occurrence: None)
  Receive Date: 20110420
  Receipt Date: 20110408
  Transmission Date: 20111010
  Serious: Yes (Hospitalization)
  Sender: FDA-Public Use
  Company Number: FR-PFIZER INC-2011085218

PATIENT
  Age: 86 Year
  Sex: Female

DRUGS (8)
  1. ATHYMIL [Concomitant]
  2. LEXOMIL [Suspect]
     Dosage: 6 MG, 2X/DAY
     Route: 048
     Dates: end: 20110228
  3. ATARAX [Suspect]
     Dosage: 100 MG, 1X/DAY
     Route: 048
     Dates: end: 20110228
  4. STILNOX [Suspect]
     Dosage: 10 MG, 1X/DAY
     Route: 048
     Dates: end: 20110228
  5. COAPROVEL [Suspect]
     Dosage: 300 MG/12.5 MG, UNK
     Route: 048
     Dates: end: 20110228
  6. CORGARD [Concomitant]
  7. PARIET [Concomitant]
  8. ROCALTROL [Concomitant]

REACTIONS (6)
  - CONFUSIONAL STATE [None]
  - HYPONATRAEMIA [None]
  - FAECALITH [None]
  - DISORIENTATION [None]
  - ANXIETY [None]
  - URINARY RETENTION [None]
